FAERS Safety Report 5049033-5 (Version None)
Quarter: 2006Q3

REPORT INFORMATION
  Report Type: 
  Country: None (occurrence: None)
  Receive Date: 20060712
  Receipt Date: 20060125
  Transmission Date: 20061208
  Serious: No
  Sender: FDA-Public Use
  Company Number: US-GLAXOSMITHKLINE-A0590911A

PATIENT
  Sex: Female

DRUGS (5)
  1. IMITREX [Suspect]
     Indication: MIGRAINE
     Dosage: 100MG PER DAY
     Route: 048
     Dates: start: 20060123
  2. GLUCOTROL XL [Concomitant]
     Route: 065
  3. DIOVAN [Concomitant]
     Route: 065
  4. TYLENOL (CAPLET) [Concomitant]
  5. NEURONTIN [Concomitant]

REACTIONS (4)
  - BACK PAIN [None]
  - DRUG ADMINISTRATION ERROR [None]
  - PAIN [None]
  - PAIN IN EXTREMITY [None]
